FAERS Safety Report 20101696 (Version 1)
Quarter: 2021Q4

REPORT INFORMATION
  Report Type: Spontaneous
  Country: IN (occurrence: IN)
  Receive Date: 20211123
  Receipt Date: 20211123
  Transmission Date: 20220303
  Serious: Yes (Hospitalization, Other)
  Sender: FDA-Public Use
  Company Number: IN-TORRENT-00002959

PATIENT
  Age: 64 Year
  Sex: Male

DRUGS (20)
  1. ESOMEPRAZOLE [Suspect]
     Active Substance: ESOMEPRAZOLE
     Indication: Product used for unknown indication
     Dosage: UNKNOWN
     Route: 042
  2. ONDANSETRON HYDROCHLORIDE [Concomitant]
     Active Substance: ONDANSETRON HYDROCHLORIDE
     Indication: Product used for unknown indication
     Dosage: UNKNOWN
  3. LESURIDE [Concomitant]
     Indication: Product used for unknown indication
     Dosage: TWICE A DAY
     Route: 048
  4. Hysone [Concomitant]
     Indication: Product used for unknown indication
     Dosage: UNKNOWN
  5. Stamlo 2.5 mg [Concomitant]
     Indication: Product used for unknown indication
     Dosage: ONCE A DAY
     Route: 048
  6. SUCRAFIL [Concomitant]
     Indication: Product used for unknown indication
     Dosage: THRICE A DAY (10 ML-10 ML-0-10 ML))
  7. DEXTROSE [Concomitant]
     Active Substance: DEXTROSE
     Indication: Product used for unknown indication
     Dosage: UNKNOWN
  8. NORDITROPIN [Concomitant]
     Active Substance: SOMATROPIN
     Indication: Product used for unknown indication
     Dosage: (1-0-0-0)
     Route: 058
  9. Anovate [Concomitant]
     Indication: Product used for unknown indication
     Dosage: (1-0-0-1)
  10. dexa [Concomitant]
     Indication: Product used for unknown indication
     Dosage: (1-1-1-1)
     Route: 048
  11. MEROMAC [Concomitant]
     Indication: Product used for unknown indication
     Dosage: UNKNOWN
  12. HYDROCORTISONE [Concomitant]
     Active Substance: HYDROCORTISONE
     Indication: Product used for unknown indication
     Dosage: UNKNOWN
  13. OCTREOTIDE [Concomitant]
     Active Substance: OCTREOTIDE
     Indication: Product used for unknown indication
     Dosage: UNKNOWN
  14. DEXAMETHASONE [Concomitant]
     Active Substance: DEXAMETHASONE
     Indication: Product used for unknown indication
     Dosage: UNKNOWN
  15. POTKLOR [Concomitant]
     Indication: Product used for unknown indication
     Dosage: UNKNOWN
  16. tazar [Concomitant]
     Indication: Product used for unknown indication
     Dosage: UNKNOWN
  17. LIOFEN [Concomitant]
     Indication: Product used for unknown indication
     Dosage: UNKNOWN
  18. hypotab [Concomitant]
     Indication: Product used for unknown indication
     Dosage: 1 SOS; 8 TABLET
     Route: 048
  19. ULTRACET [Concomitant]
     Active Substance: ACETAMINOPHEN\TRAMADOL HYDROCHLORIDE
     Indication: Product used for unknown indication
     Dosage: 1 SOS, 5 TABLET
     Route: 048
  20. pantocid [Concomitant]
     Indication: Product used for unknown indication
     Dosage: (1-0-0-1), 1 MONTH
     Route: 048

REACTIONS (1)
  - Hypoglycaemia [Recovering/Resolving]
